FAERS Safety Report 11672922 (Version 2)
Quarter: 2019Q1

REPORT INFORMATION
  Report Type: Spontaneous
  Country: SE (occurrence: SE)
  Receive Date: 20151028
  Receipt Date: 20190131
  Transmission Date: 20190417
  Serious: Yes (Hospitalization)
  Sender: FDA-Public Use
  Company Number: SE-ACCORD-034866

PATIENT
  Age: 63 Year
  Sex: Female
  Weight: 73 kg

DRUGS (4)
  1. AVASTIN [Suspect]
     Active Substance: BEVACIZUMAB
     Indication: OVARIAN CANCER RECURRENT
     Dates: start: 20150804, end: 20150805
  2. GEMCITABINE/GEMCITABINE HYDROCHLORIDE [Suspect]
     Active Substance: GEMCITABINE\GEMCITABINE HYDROCHLORIDE
     Indication: OVARIAN CANCER RECURRENT
     Route: 042
     Dates: start: 20150804
  3. ONDANSETRON [Concomitant]
     Active Substance: ONDANSETRON
     Indication: VOMITING
  4. CARBOPLATIN. [Suspect]
     Active Substance: CARBOPLATIN
     Indication: OVARIAN CANCER RECURRENT
     Dosage: AUC5
     Route: 042
     Dates: start: 20150804

REACTIONS (6)
  - Posterior reversible encephalopathy syndrome [Unknown]
  - Headache [Recovered/Resolved]
  - Hypertension [Recovered/Resolved]
  - Confusional state [Recovered/Resolved]
  - Transient global amnesia [Recovered/Resolved]
  - Nausea [Recovered/Resolved]

NARRATIVE: CASE EVENT DATE: 20150804
